FAERS Safety Report 10751048 (Version 2)
Quarter: 2015Q1

REPORT INFORMATION
  Report Type: Spontaneous
  Country: GB (occurrence: GB)
  Receive Date: 20150130
  Receipt Date: 20150210
  Transmission Date: 20150721
  Serious: Yes (Other)
  Sender: FDA-Public Use
  Company Number: GB-SA-2015SA011358

PATIENT
  Sex: Male
  Weight: 3.6 kg

DRUGS (1)
  1. FABRAZYME [Suspect]
     Active Substance: AGALSIDASE BETA
     Route: 064

REACTIONS (3)
  - Foetal distress syndrome [Unknown]
  - Tachycardia [Unknown]
  - Foetal exposure during pregnancy [Unknown]
